FAERS Safety Report 9033325 (Version 1)
Quarter: 2013Q1

REPORT INFORMATION
  Report Type: Spontaneous
  Country: US (occurrence: US)
  Receive Date: 20130128
  Receipt Date: 20130128
  Transmission Date: 20140127
  Serious: No
  Sender: FDA-Public Use
  Company Number: US-B.I. PHARMACEUTICALS,INC./RIDGEFIELD-2013-BI-02111BP

PATIENT
  Age: 80 Year
  Sex: Female

DRUGS (2)
  1. PRADAXA [Suspect]
     Dosage: 300 MG
     Route: 048
     Dates: start: 201301, end: 20130123
  2. GEODON [Concomitant]
     Indication: DEMENTIA

REACTIONS (4)
  - Anger [Unknown]
  - Irritability [Unknown]
  - Dementia [Unknown]
  - Blood urine present [Unknown]
